FAERS Safety Report 11549062 (Version 2)
Quarter: 2015Q3

REPORT INFORMATION
  Report Type: Spontaneous
  Country: US (occurrence: US)
  Receive Date: 20150903
  Receipt Date: 20150916
  Transmission Date: 20151125
  Serious: No
  Sender: FDA-Public Use
  Company Number: US-ELI_LILLY_AND_COMPANY-US201206008374

PATIENT
  Age: 77 Year
  Sex: Female

DRUGS (4)
  1. BYETTA [Concomitant]
     Active Substance: EXENATIDE
  2. LEVEMIR [Concomitant]
     Active Substance: INSULIN DETEMIR
  3. HUMALOG [Suspect]
     Active Substance: INSULIN LISPRO
     Indication: TYPE 2 DIABETES MELLITUS
     Dosage: 25 U, EACH EVENING
     Route: 065
  4. HUMALOG [Suspect]
     Active Substance: INSULIN LISPRO
     Dosage: UNK
     Route: 065

REACTIONS (10)
  - Drug dose omission [Unknown]
  - Chronic obstructive pulmonary disease [Unknown]
  - Incorrect product storage [Unknown]
  - Cardiac disorder [Unknown]
  - Blood glucose increased [Unknown]
  - Blood glucose increased [Unknown]
  - Palpitations [Unknown]
  - Hypertension [Unknown]
  - Blood cholesterol increased [Unknown]
  - Underdose [Unknown]

NARRATIVE: CASE EVENT DATE: 20131115
